FAERS Safety Report 14625369 (Version 9)
Quarter: 2018Q2

REPORT INFORMATION
  Report Type: Report from Study
  Country: DE (occurrence: DE)
  Receive Date: 20180312
  Receipt Date: 20180518
  Transmission Date: 20180711
  Serious: Yes (Death, Hospitalization)
  Sender: FDA-Public Use
  Company Number: PHHY2017DE201581

PATIENT
  Age: 80 Year
  Sex: Female
  Weight: 56 kg

DRUGS (16)
  1. TORASEMID [Suspect]
     Active Substance: TORSEMIDE
     Indication: PRODUCT USED FOR UNKNOWN INDICATION
     Route: 065
  2. TORASEMID [Suspect]
     Active Substance: TORSEMIDE
     Dosage: UNK
     Route: 065
  3. XARELTO [Concomitant]
     Active Substance: RIVAROXABAN
     Indication: ATRIAL FIBRILLATION
     Dosage: 20 MG, UNK
     Route: 048
  4. MIRTAZAPIN [Suspect]
     Active Substance: MIRTAZAPINE
     Indication: DEPRESSION
     Dosage: 30 MG, QD
     Route: 048
     Dates: start: 20050630
  5. PACLITAXEL. [Suspect]
     Active Substance: PACLITAXEL
     Dosage: 80-134.4 MG/M2
     Route: 042
     Dates: start: 20170505, end: 20170810
  6. PERTUZUMAB. [Suspect]
     Active Substance: PERTUZUMAB
     Indication: HER-2 POSITIVE BREAST CANCER
     Dosage: 420 MG, Q3W (MOST RECENT DOSE ON 17 AUG 2017
     Route: 042
     Dates: start: 20170505
  7. LETROZOLE. [Suspect]
     Active Substance: LETROZOLE
     Indication: HER-2 POSITIVE BREAST CANCER
     Dosage: 2.5 MG, QD
     Route: 065
     Dates: start: 20170916
  8. TRASTUZUMAB. [Suspect]
     Active Substance: TRASTUZUMAB
     Indication: HER-2 POSITIVE BREAST CANCER
     Dosage: 120-600 MG MOST RECENT DOSE ON 17/AUG/2017
     Route: 042
     Dates: start: 20170505
  9. DOXEPIN [Concomitant]
     Active Substance: DOXEPIN
     Indication: DEPRESSION
     Dosage: 25 MG, QD
     Route: 048
     Dates: start: 20050630
  10. BISOHEXAL [Concomitant]
     Active Substance: BISOPROLOL FUMARATE
     Indication: HYPERTENSION
     Dosage: 2.5 MG, UNK
     Route: 048
  11. DOCETAXEL. [Suspect]
     Active Substance: DOCETAXEL
     Indication: HER-2 POSITIVE BREAST CANCER
     Route: 065
  12. XGEVA [Suspect]
     Active Substance: DENOSUMAB
     Indication: HER-2 POSITIVE BREAST CANCER
     Dosage: 480 MG, UNK
     Route: 058
     Dates: start: 20170421
  13. BISOHEXAL [Concomitant]
     Active Substance: BISOPROLOL FUMARATE
     Dosage: 10 MG, UNK
     Route: 048
  14. PACLITAXEL. [Suspect]
     Active Substance: PACLITAXEL
     Indication: HER-2 POSITIVE BREAST CANCER
     Dosage: 1, QW (80-134.4 MG/M2)
     Route: 042
     Dates: start: 20170505, end: 20170810
  15. TRASTUZUMAB. [Suspect]
     Active Substance: TRASTUZUMAB
     Dosage: 1008 MG/KG, UNK
     Route: 042
     Dates: start: 20180103
  16. L-THYROXIN [Suspect]
     Active Substance: LEVOTHYROXINE SODIUM
     Indication: HYPOTHYROIDISM
     Dosage: 75 UG, UNK
     Route: 048
     Dates: start: 20060630

REACTIONS (11)
  - Cystitis [Recovered/Resolved]
  - Dysaesthesia [Recovered/Resolved]
  - Fatigue [Not Recovered/Not Resolved]
  - Ill-defined disorder [Recovered/Resolved]
  - Mastectomy [Recovered/Resolved]
  - Left ventricular dysfunction [Not Recovered/Not Resolved]
  - Metastases to liver [Unknown]
  - Nausea [Recovered/Resolved]
  - Fatigue [Recovered/Resolved]
  - Asthenia [Fatal]
  - Metastases to bone [Unknown]

NARRATIVE: CASE EVENT DATE: 20170421
